FAERS Safety Report 13777061 (Version 1)
Quarter: 2017Q3

REPORT INFORMATION
  Report Type: Spontaneous
  Country: US (occurrence: US)
  Receive Date: 20170721
  Receipt Date: 20170721
  Transmission Date: 20171127
  Serious: Yes (Hospitalization)
  Sender: FDA-Public Use
  Company Number: None

PATIENT
  Age: 52 Year
  Sex: Male
  Weight: 146 kg

DRUGS (2)
  1. ENALAPRILAT. [Suspect]
     Active Substance: ENALAPRILAT
     Indication: CEREBROVASCULAR ACCIDENT
     Dosage: ?          OTHER DOSE:MG;OTHER FREQUENCY:ONCE;?
     Route: 040
     Dates: start: 20170714, end: 20170714
  2. ALTEPLASE. [Suspect]
     Active Substance: ALTEPLASE
     Indication: CEREBROVASCULAR ACCIDENT
     Dosage: ?          OTHER DOSE:MG;OTHER FREQUENCY:ONCE;?
     Route: 041
     Dates: start: 20170714, end: 20170714

REACTIONS (1)
  - Angioedema [None]

NARRATIVE: CASE EVENT DATE: 20170714
